FAERS Safety Report 6806354-0 (Version None)
Quarter: 2010Q2

REPORT INFORMATION
  Report Type: 
  Country: None (occurrence: None)
  Receive Date: 20100629
  Receipt Date: 20080722
  Transmission Date: 20101027
  Serious: No
  Sender: FDA-Public Use
  Company Number: US-PFIZER INC-2008004207

PATIENT
  Sex: Male
  Weight: 81.818 kg

DRUGS (6)
  1. TIKOSYN [Suspect]
     Indication: ATRIAL FIBRILLATION
     Dates: start: 20040101
  2. CRESTOR [Concomitant]
  3. ZETIA [Concomitant]
  4. VITAMINS [Concomitant]
  5. FISH OIL [Concomitant]
  6. CHONDROITIN/GLUCOSAMINE/METHYLSULFONYLMETHANE [Concomitant]

REACTIONS (2)
  - DYSPNOEA [None]
  - MYALGIA [None]
